FAERS Safety Report 21915770 (Version 3)
Quarter: 2023Q2

REPORT INFORMATION
  Report Type: Spontaneous
  Country: US (occurrence: US)
  Receive Date: 20230126
  Receipt Date: 20230621
  Transmission Date: 20230721
  Serious: No
  Sender: FDA-Public Use
  Company Number: US-PFIZER INC-202300036219

PATIENT
  Sex: Female

DRUGS (2)
  1. MENEST [Suspect]
     Active Substance: ESTROGENS, ESTERIFIED
     Indication: Hot flush
     Dosage: 0.625 MG
  2. MENEST [Suspect]
     Active Substance: ESTROGENS, ESTERIFIED
     Indication: Menopause

REACTIONS (1)
  - Feeling abnormal [Unknown]
